FAERS Safety Report 21475121 (Version 10)
Quarter: 2024Q3

REPORT INFORMATION
  Report Type: Report from Study
  Country: DE (occurrence: DE)
  Receive Date: 20221019
  Receipt Date: 20240904
  Transmission Date: 20241017
  Serious: Yes (Hospitalization, Other)
  Sender: ROCHE
  Company Number: DE-ROCHE-3159749

PATIENT
  Age: 54 Year
  Sex: Female

DRUGS (4)
  1. OCREVUS [Suspect]
     Active Substance: OCRELIZUMAB
     Indication: Multiple sclerosis
     Dosage: START DATE: 23-JAN-2020
     Route: 042
  2. CORTISONE [Concomitant]
     Active Substance: CORTISONE
  3. NABIXIMOLS [Concomitant]
     Active Substance: NABIXIMOLS
  4. IBUPROFEN [Concomitant]
     Active Substance: IBUPROFEN

REACTIONS (14)
  - Sacroiliitis [Not Recovered/Not Resolved]
  - COVID-19 [Recovered/Resolved]
  - Cyst [Recovered/Resolved]
  - Synovial cyst [Recovered/Resolved]
  - Hypokinesia [Recovered/Resolved]
  - Fall [Unknown]
  - Balance disorder [Recovered/Resolved]
  - Haematoma [Recovered/Resolved]
  - Joint range of motion decreased [Not Recovered/Not Resolved]
  - Pain [Not Recovered/Not Resolved]
  - Arthralgia [Not Recovered/Not Resolved]
  - Injection site erythema [Recovered/Resolved]
  - Injection site swelling [Recovered/Resolved]
  - Asthenia [Not Recovered/Not Resolved]

NARRATIVE: CASE EVENT DATE: 20160101
